FAERS Safety Report 4910346-6 (Version None)
Quarter: 2006Q1

REPORT INFORMATION
  Report Type: 
  Country: None (occurrence: None)
  Receive Date: 20060209
  Receipt Date: 20060130
  Transmission Date: 20060701
  Serious: Yes (Life-Threatening, Hospitalization)
  Sender: FDA-Public Use
  Company Number: 2006-00361

PATIENT
  Age: 49 Year
  Sex: Female

DRUGS (1)
  1. FERRLECIT [Suspect]
     Indication: IRON DEFICIENCY ANAEMIA
     Dosage: 125 MG IN 250ML NAC1.9%, SINGLE, INTRAVENOUS
     Route: 042
     Dates: start: 20060119, end: 20060119

REACTIONS (7)
  - ABDOMINAL PAIN UPPER [None]
  - ANGIONEUROTIC OEDEMA [None]
  - CHEST DISCOMFORT [None]
  - HAEMODYNAMIC INSTABILITY [None]
  - MALAISE [None]
  - SHOCK [None]
  - URTICARIA [None]
